FAERS Safety Report 6689896-0 (Version None)
Quarter: 2010Q2

REPORT INFORMATION
  Report Type: 
  Country: None (occurrence: None)
  Receive Date: 20100421
  Receipt Date: 20091218
  Transmission Date: 20101027
  Serious: No
  Sender: FDA-Public Use
  Company Number: US-TYCO HEALTHCARE/MALLINCKRODT-T200902386

PATIENT
  Age: 32 Year
  Sex: Male

DRUGS (1)
  1. METHYLIN [Suspect]
     Indication: NARCOLEPSY
     Dosage: 25 MG, QID

REACTIONS (2)
  - ABDOMINAL DISCOMFORT [None]
  - INCORRECT DOSE ADMINISTERED [None]
